FAERS Safety Report 5469689-2 (Version None)
Quarter: 2007Q3

REPORT INFORMATION
  Report Type: 
  Country: None (occurrence: None)
  Receive Date: 20070927
  Receipt Date: 20070918
  Transmission Date: 20080115
  Serious: Yes (Death)
  Sender: FDA-Public Use
  Company Number: US-ROCHE-506689

PATIENT
  Age: 22 Year
  Sex: Male
  Weight: 78.4 kg

DRUGS (2)
  1. ACCUTANE [Suspect]
     Indication: ACNE
     Route: 048
     Dates: start: 20060614, end: 20060714
  2. AMNESTEEM [Suspect]
     Indication: ACNE
     Route: 048
     Dates: start: 20060718, end: 20061123

REACTIONS (1)
  - COMPLETED SUICIDE [None]
